APPROVED DRUG PRODUCT: STERILE WATER FOR INJECTION
Active Ingredient: STERILE WATER FOR INJECTION
Strength: 100% (10ML)
Dosage Form/Route: LIQUID;N/A
Application: N018801 | Product #002 | TE Code: AP
Applicant: HOSPIRA INC
Approved: Oct 27, 1982 | RLD: Yes | RS: Yes | Type: RX